FAERS Safety Report 5431667-7 (Version None)
Quarter: 2007Q3

REPORT INFORMATION
  Report Type: 
  Country: None (occurrence: None)
  Receive Date: 20070830
  Receipt Date: 20070821
  Transmission Date: 20080115
  Serious: Yes (Hospitalization)
  Sender: FDA-Public Use
  Company Number: GB-SANOFI-SYNTHELABO-A01200709395

PATIENT
  Age: 69 Year
  Sex: Male

DRUGS (4)
  1. CAPECITABINE [Suspect]
     Indication: RECTAL CANCER
     Dosage: UNK
  2. CAPECITABINE [Suspect]
     Indication: METASTASES TO LIVER
     Dosage: UNK
  3. ELOXATIN [Suspect]
     Indication: RECTAL CANCER
     Dosage: UNK
  4. ELOXATIN [Suspect]
     Indication: METASTASES TO LIVER
     Dosage: UNK

REACTIONS (1)
  - PERIPHERAL ISCHAEMIA [None]
